FAERS Safety Report 5923326-9 (Version None)
Quarter: 2008Q4

REPORT INFORMATION
  Report Type: 
  Country: None (occurrence: None)
  Receive Date: 20081015
  Receipt Date: 20080929
  Transmission Date: 20090506
  Serious: No
  Sender: FDA-Public Use
  Company Number: 238105J08USA

PATIENT
  Age: 55 Year
  Sex: Female
  Weight: 77 kg

DRUGS (5)
  1. REBIF [Suspect]
     Indication: MULTIPLE SCLEROSIS
     Dosage: 44 MCG, 3 IN 1 WEEKS, SUBCUTANEOUS
     Route: 058
     Dates: start: 20080708, end: 20080926
  2. LEXAPRO [Concomitant]
  3. B12 (CYANOCOBALAMIN-TANNIN COMPLEX) [Concomitant]
  4. VITAMIN D [Concomitant]
  5. MULTIVITAMIN (MULTIVITAMIN /00831701/ [Concomitant]

REACTIONS (2)
  - HEPATIC ENZYME INCREASED [None]
  - THYROXINE INCREASED [None]
